FAERS Safety Report 10048491 (Version 1)
Quarter: 2014Q1

REPORT INFORMATION
  Report Type: Report from Study
  Country: TW (occurrence: TW)
  Receive Date: 20140331
  Receipt Date: 20140331
  Transmission Date: 20141002
  Serious: No
  Sender: FDA-Public Use
  Company Number: PHHY2014TW038684

PATIENT
  Age: 80 Year
  Sex: Male

DRUGS (3)
  1. AMN107 [Suspect]
     Indication: CHRONIC MYELOID LEUKAEMIA
  2. KAOLIN [Concomitant]
     Dosage: 90 ML, UNK
     Route: 048
     Dates: start: 20130823, end: 20130825
  3. LOPERAMIDE [Concomitant]
     Dosage: 4 MG, UNK
     Route: 048
     Dates: start: 20130904, end: 20131014

REACTIONS (1)
  - Diarrhoea [Recovered/Resolved]
